FAERS Safety Report 6203767-5 (Version None)
Quarter: 2009Q2

REPORT INFORMATION
  Report Type: 
  Country: None (occurrence: None)
  Receive Date: 20090526
  Receipt Date: 20090526
  Transmission Date: 20091009
  Serious: Yes (Other)
  Sender: FDA-Public Use
  Company Number: None

PATIENT
  Sex: Male
  Weight: 113.3993 kg

DRUGS (3)
  1. SEROQUEL [Suspect]
     Indication: DEPRESSION
     Dosage: 400 MG DAILY PO
     Route: 048
  2. SEROQUEL [Suspect]
     Indication: DRUG RESISTANCE
     Dosage: 400 MG DAILY PO
     Route: 048
  3. LAMICTAL [Concomitant]

REACTIONS (1)
  - CATARACT [None]
